FAERS Safety Report 7544316-9 (Version None)
Quarter: 2011Q2

REPORT INFORMATION
  Report Type: 
  Country: None (occurrence: None)
  Receive Date: 20110613
  Receipt Date: 20080218
  Transmission Date: 20111010
  Serious: Yes (Other)
  Sender: FDA-Public Use
  Company Number: PHHY2008CA02098

PATIENT
  Sex: Male
  Weight: 108 kg

DRUGS (1)
  1. ZOMETA [Suspect]
     Indication: PROSTATE CANCER
     Dosage: 4 MG EVERY FOUR WEEK
     Route: 042
     Dates: start: 20070921

REACTIONS (1)
  - TESTICULAR DISORDER [None]
